FAERS Safety Report 8602469-5 (Version None)
Quarter: 2012Q3

REPORT INFORMATION
  Report Type: 
  Country: None (occurrence: None)
  Receive Date: 20120817
  Receipt Date: 20120807
  Transmission Date: 20120928
  Serious: Yes (Death, Hospitalization)
  Sender: FDA-Public Use
  Company Number: CN-ROCHE-1100786

PATIENT
  Sex: Male
  Weight: 68 kg

DRUGS (2)
  1. ALTEPLASE [Suspect]
     Indication: CEREBRAL INFARCTION
     Route: 042
     Dates: start: 20090419, end: 20090419
  2. OMEPRAZOLE [Concomitant]
     Dates: start: 20090419, end: 20090419

REACTIONS (1)
  - HENOCH-SCHONLEIN PURPURA [None]
